FAERS Safety Report 13870270 (Version 3)
Quarter: 2017Q3

REPORT INFORMATION
  Report Type: Spontaneous
  Country: US (occurrence: US)
  Receive Date: 20170815
  Receipt Date: 20170907
  Transmission Date: 20171127
  Serious: Yes (Hospitalization)
  Sender: FDA-Public Use
  Company Number: US-BIOMARINAP-US-2017-115031

PATIENT
  Sex: Male

DRUGS (1)
  1. NAGLAZYME [Suspect]
     Active Substance: GALSULFASE
     Indication: MUCOPOLYSACCHARIDOSIS VI
     Dosage: UNK, UNK, QW
     Route: 042

REACTIONS (5)
  - Bacteraemia [Unknown]
  - Device related infection [Unknown]
  - Pyrexia [Unknown]
  - Arthralgia [Unknown]
  - Blood culture positive [Unknown]
